FAERS Safety Report 23663303 (Version 4)
Quarter: 2025Q3

REPORT INFORMATION
  Report Type: Spontaneous
  Country: EU (occurrence: EU)
  Receive Date: 20240322
  Receipt Date: 20250922
  Transmission Date: 20251020
  Serious: Yes (Hospitalization)
  Sender: ACCORD
  Company Number: EU-Accord-413895

PATIENT
  Age: 41 Year
  Sex: Male

DRUGS (10)
  1. SERTRALINE [Interacting]
     Active Substance: SERTRALINE HYDROCHLORIDE
     Indication: Insomnia
     Dosage: 50 MG IN THE MORNING
  2. ACETAMINOPHEN [Interacting]
     Active Substance: ACETAMINOPHEN
     Indication: Visceral pain
  3. PREGABALIN [Interacting]
     Active Substance: PREGABALIN
     Indication: Visceral pain
  4. FENTANYL [Interacting]
     Active Substance: FENTANYL
     Indication: Visceral pain
     Route: 062
  5. MIANSERIN [Interacting]
     Active Substance: MIANSERIN
     Indication: Insomnia
     Dosage: 30 MG AT NIGHT
  6. BUTYLSCOPOLAMINE BROMIDE [Interacting]
     Active Substance: BUTYLSCOPOLAMINE BROMIDE
     Indication: Visceral pain
     Route: 048
  7. FENTANYL [Interacting]
     Active Substance: FENTANYL
     Indication: Visceral pain
     Route: 045
  8. VALPROIC ACID [Interacting]
     Active Substance: VALPROIC ACID
     Indication: Pain
  9. FENTANYL [Interacting]
     Active Substance: FENTANYL
     Indication: Visceral pain
     Route: 062
  10. FENTANYL [Interacting]
     Active Substance: FENTANYL
     Indication: Visceral pain
     Route: 062

REACTIONS (5)
  - Off label use [Unknown]
  - Drug interaction [Unknown]
  - Hyperaesthesia [Recovered/Resolved]
  - Hypersomnia [Unknown]
  - Condition aggravated [Recovering/Resolving]
